FAERS Safety Report 5184803-4 (Version None)
Quarter: 2006Q4

REPORT INFORMATION
  Report Type: 
  Country: None (occurrence: None)
  Receive Date: 20061220
  Receipt Date: 20060425
  Transmission Date: 20070319
  Serious: No
  Sender: FDA-Public Use
  Company Number: US-GLAXOSMITHKLINE-A0603195A

PATIENT
  Age: 64 Year
  Sex: Female

DRUGS (1)
  1. MEMBERS MARK NTS ORIGINAL, 21MG [Suspect]

REACTIONS (2)
  - DRUG INEFFECTIVE [None]
  - INTENTIONAL DRUG MISUSE [None]
